FAERS Safety Report 9475483 (Version 3)
Quarter: 2013Q4

REPORT INFORMATION
  Report Type: Spontaneous
  Country: IT (occurrence: IT)
  Receive Date: 20130826
  Receipt Date: 20131009
  Transmission Date: 20140711
  Serious: Yes (Hospitalization)
  Sender: FDA-Public Use
  Company Number: IT-ROCHE-1265526

PATIENT
  Age: 61 Year
  Sex: Female

DRUGS (9)
  1. MABTHERA [Suspect]
     Indication: B-CELL LYMPHOMA
     Dosage: 1 VIAL: 500MG 50ML
     Route: 042
     Dates: start: 20130819, end: 20130819
  2. CYCLOPHOSPHAMIDE [Concomitant]
     Indication: B-CELL LYMPHOMA
     Route: 042
     Dates: start: 20130813, end: 20130813
  3. LANOXIN [Concomitant]
     Indication: CARDIAC FAILURE
     Route: 048
  4. VINCRISTINE [Concomitant]
     Indication: B-CELL LYMPHOMA
     Route: 042
     Dates: start: 20130813, end: 20130813
  5. OXYGEN [Concomitant]
     Indication: CHRONIC OBSTRUCTIVE PULMONARY DISEASE
  6. LASITONE [Concomitant]
     Indication: CARDIAC FAILURE
     Dosage: 25MG+37MG
     Route: 048
  7. FLUIMUCIL (ITALY) [Concomitant]
     Indication: CHRONIC OBSTRUCTIVE PULMONARY DISEASE
     Route: 048
  8. CARDIOASPIRIN [Concomitant]
     Indication: CARDIAC FAILURE
     Dosage: 100 MG
     Route: 065
  9. ZEFFIX [Concomitant]
     Indication: HEPATITIS B
     Route: 048

REACTIONS (2)
  - Hypotension [Recovered/Resolved]
  - Tremor [Recovered/Resolved]
